FAERS Safety Report 6089611-8 (Version None)
Quarter: 2009Q1

REPORT INFORMATION
  Report Type: 
  Country: None (occurrence: None)
  Receive Date: 20090224
  Receipt Date: 20090217
  Transmission Date: 20090719
  Serious: Yes (Hospitalization, Other)
  Sender: FDA-Public Use
  Company Number: PHEH2005US10691

PATIENT
  Sex: Male
  Weight: 134.69 kg

DRUGS (29)
  1. ZOMETA [Suspect]
     Dosage: 4 MG, QMO
     Route: 042
     Dates: start: 20021118, end: 20050301
  2. CHEMOTHERAPEUTICS,OTHER [Concomitant]
  3. RADIATION THERAPY [Concomitant]
  4. PROTONIX [Concomitant]
     Dosage: 40 MG, QD
     Route: 048
  5. GLYBURIDE [Concomitant]
     Dosage: 2.5 MG, QD
     Route: 048
  6. GLYBURIDE [Concomitant]
     Dosage: 5MG, QD
  7. DOCUSATE [Concomitant]
     Dosage: 100 MG, QD
  8. CELEBREX [Concomitant]
     Dosage: 100 MG, BID
     Route: 048
  9. LIPITOR [Concomitant]
     Dosage: 20 MG, QD
     Route: 048
  10. VICODIN [Concomitant]
     Dosage: UNK, PRN
  11. METOPROLOL [Concomitant]
     Dosage: 50 MG, BID
     Route: 048
  12. ENALAPRIL [Concomitant]
     Dosage: 10 MG, BID
     Route: 048
  13. OXYCODONE [Concomitant]
     Dosage: 10 MG, PRN
     Route: 048
  14. SENOKOT /UNK/ [Concomitant]
  15. COLACE [Concomitant]
     Dosage: 100 MG, BID
     Route: 048
  16. PHENERGAN [Concomitant]
     Dosage: 25 MG, Q6H
     Route: 042
  17. NAPROSYN [Concomitant]
     Dosage: 500 MG, BID
     Route: 048
  18. HYDROCODONE [Concomitant]
  19. NITROGLYCERIN [Concomitant]
  20. ASPIRIN [Concomitant]
     Dosage: 325MG, QD
  21. MULTI-VITAMIN [Concomitant]
  22. METFORMIN [Concomitant]
     Dosage: 500 MG, UNK
  23. NITRO-BID OINTMENT [Concomitant]
  24. OMEPRAZOLE [Concomitant]
     Dosage: 20 MG, UNK
  25. VIAGRA [Concomitant]
     Dosage: 50 MG, UNK
  26. MORPHINE SULFATE [Concomitant]
  27. GABAPENTIN [Concomitant]
     Dosage: 300 MG, UNK
  28. METHADONE HCL [Concomitant]
     Dosage: 5 MG, UNK
  29. GLIPIZIDE [Concomitant]
     Dosage: 10 MG, UNK

REACTIONS (59)
  - ABSCESS [None]
  - ABSCESS DRAINAGE [None]
  - ADRENALECTOMY [None]
  - ALVEOLAR OSTEITIS [None]
  - ANAL FISSURE [None]
  - ANAL PRURITUS [None]
  - BLOOD GLUCOSE INCREASED [None]
  - BONE DEBRIDEMENT [None]
  - BONE DISORDER [None]
  - BRAIN NEOPLASM [None]
  - CONVULSION [None]
  - DEEP VEIN THROMBOSIS [None]
  - DIABETES MELLITUS [None]
  - DIABETES MELLITUS INADEQUATE CONTROL [None]
  - DISEASE PROGRESSION [None]
  - DYSPNOEA [None]
  - ERYTHEMA [None]
  - FACE OEDEMA [None]
  - FACIAL PAIN [None]
  - FACIAL PALSY [None]
  - FACIAL PARESIS [None]
  - FISTULA [None]
  - HAEMORRHAGE [None]
  - HEADACHE [None]
  - HUMERUS FRACTURE [None]
  - INFLAMMATION [None]
  - INSOMNIA [None]
  - ISCHAEMIC STROKE [None]
  - IVTH NERVE PARALYSIS [None]
  - JAW FRACTURE [None]
  - JAW OPERATION [None]
  - LYMPHADENOPATHY [None]
  - MAJOR DEPRESSION [None]
  - METASTASES TO ADRENALS [None]
  - METASTASES TO GALLBLADDER [None]
  - METASTASES TO SPINE [None]
  - MUSCLE TIGHTNESS [None]
  - NIGHT BLINDNESS [None]
  - ORAL SURGERY [None]
  - OSTEITIS [None]
  - OSTEOMYELITIS [None]
  - OSTEONECROSIS [None]
  - PAIN IN JAW [None]
  - PERIODONTAL DISEASE [None]
  - PLASTIC SURGERY [None]
  - PRIMARY SEQUESTRUM [None]
  - RASH MACULAR [None]
  - RECTAL HAEMORRHAGE [None]
  - SCROTAL DISORDER [None]
  - SCROTAL SWELLING [None]
  - SEQUESTRECTOMY [None]
  - STAPHYLOCOCCAL BACTERAEMIA [None]
  - STOMATITIS [None]
  - SWELLING FACE [None]
  - TOOTH DISORDER [None]
  - TOOTH EXTRACTION [None]
  - TOOTH LOSS [None]
  - WEIGHT DECREASED [None]
  - WOUND TREATMENT [None]
